FAERS Safety Report 21212027 (Version 1)
Quarter: 2022Q3

REPORT INFORMATION
  Report Type: Spontaneous
  Country: US (occurrence: None)
  Receive Date: 20220815
  Receipt Date: 20220815
  Transmission Date: 20221026
  Serious: No
  Sender: FDA-Public Use
  Company Number: 2022A271495

PATIENT
  Sex: Female
  Weight: 81.6 kg

DRUGS (1)
  1. SYMBICORT [Suspect]
     Active Substance: BUDESONIDE\FORMOTEROL FUMARATE DIHYDRATE
     Indication: COVID-19
     Dosage: DOSE 80/4.5 MCG, UNKNOWN UNKNOWN
     Route: 055
     Dates: start: 202007

REACTIONS (6)
  - Aphonia [Unknown]
  - COVID-19 [Unknown]
  - Respiration abnormal [Unknown]
  - Cough [Unknown]
  - Intentional dose omission [Unknown]
  - Product cleaning inadequate [Unknown]
